FAERS Safety Report 25863757 (Version 1)
Quarter: 2025Q3

REPORT INFORMATION
  Report Type: Spontaneous
  Country: GB (occurrence: None)
  Receive Date: 20250930
  Receipt Date: 20250930
  Transmission Date: 20251020
  Serious: Yes (Other)
  Sender: ORION
  Company Number: GB-MLMSERVICE-20250919-PI650675-00218-1

PATIENT
  Sex: Female

DRUGS (5)
  1. METHOTREXATE [Suspect]
     Active Substance: METHOTREXATE
     Indication: Rheumatoid arthritis
     Dates: start: 1990, end: 2011
  2. AZATHIOPRINE [Suspect]
     Active Substance: AZATHIOPRINE
     Indication: Rheumatoid arthritis
     Dates: start: 1990, end: 2011
  3. PREDNISOLONE [Suspect]
     Active Substance: PREDNISOLONE
     Indication: Rheumatoid arthritis
     Dates: start: 1990, end: 2011
  4. PREDNISOLONE [Suspect]
     Active Substance: PREDNISOLONE
     Dosage: LIFELONG
  5. HYDROXYCHLOROQUINE [Suspect]
     Active Substance: HYDROXYCHLOROQUINE
     Indication: Rheumatoid arthritis
     Dates: start: 1990, end: 2011

REACTIONS (5)
  - Herpes zoster [Unknown]
  - Lower respiratory tract infection [Unknown]
  - Escherichia bacteraemia [Unknown]
  - Escherichia sepsis [Unknown]
  - Hypergammaglobulinaemia benign monoclonal [Unknown]

NARRATIVE: CASE EVENT DATE: 20110101
